FAERS Safety Report 5333807-7 (Version None)
Quarter: 2007Q2

REPORT INFORMATION
  Report Type: 
  Country: None (occurrence: None)
  Receive Date: 20070524
  Receipt Date: 20070516
  Transmission Date: 20071010
  Serious: Yes (Hospitalization)
  Sender: FDA-Public Use
  Company Number: US-ELI_LILLY_AND_COMPANY-US200705004299

PATIENT
  Age: 52 Year
  Sex: Female
  Weight: 96.598 kg

DRUGS (6)
  1. BYETTA [Suspect]
     Indication: DIABETES MELLITUS NON-INSULIN-DEPENDENT
     Dosage: 5 UG, 2/D
     Route: 058
     Dates: start: 20061201, end: 20070101
  2. BYETTA [Suspect]
     Dosage: 10 UG, 2/D
     Route: 058
     Dates: start: 20070101
  3. METFORMIN HCL [Concomitant]
     Indication: DIABETES MELLITUS NON-INSULIN-DEPENDENT
     Dosage: 500 MG, 3/D
     Route: 048
  4. CYMBALTA [Concomitant]
     Indication: NEURALGIA
     Dosage: 60 MG, DAILY (1/D)
     Route: 048
     Dates: start: 20060101
  5. PERCOCET [Concomitant]
     Indication: BACK PAIN
     Dosage: UNK, UNKNOWN
     Route: 065
  6. OXYCONTIN [Concomitant]
     Indication: BACK PAIN
     Dosage: UNK, UNKNOWN
     Route: 065

REACTIONS (8)
  - ABDOMINAL DISCOMFORT [None]
  - ARTHRALGIA [None]
  - BACK PAIN [None]
  - DECREASED APPETITE [None]
  - HYPOAESTHESIA [None]
  - INTERVERTEBRAL DISC DEGENERATION [None]
  - NAUSEA [None]
  - WEIGHT DECREASED [None]
